FAERS Safety Report 4857155-4 (Version None)
Quarter: 2005Q4

REPORT INFORMATION
  Report Type: 
  Country: None (occurrence: None)
  Receive Date: 20051219
  Receipt Date: 20050711
  Transmission Date: 20060501
  Serious: No
  Sender: FDA-Public Use
  Company Number: US-GLAXOSMITHKLINE-A0565666A

PATIENT
  Age: 61 Year
  Sex: Male

DRUGS (7)
  1. NICODERM CQ [Suspect]
  2. ASPIRIN [Concomitant]
  3. PLAVIX [Concomitant]
  4. NORVASC [Concomitant]
  5. TOPROL-XL [Concomitant]
  6. IMDUR [Concomitant]
  7. ZOCOR [Concomitant]

REACTIONS (4)
  - DYSPNOEA [None]
  - HEADACHE [None]
  - HEART RATE INCREASED [None]
  - SKIN DISCOLOURATION [None]
